FAERS Safety Report 17195517 (Version 2)
Quarter: 2020Q1

REPORT INFORMATION
  Report Type: Spontaneous
  Country: JP (occurrence: JP)
  Receive Date: 20191224
  Receipt Date: 20200302
  Transmission Date: 20200409
  Serious: Yes (Hospitalization)
  Sender: FDA-Public Use
  Company Number: JP-ELI_LILLY_AND_COMPANY-JP201912009118

PATIENT
  Age: 81 Year
  Sex: Male

DRUGS (3)
  1. MITIGLINIDE [Concomitant]
     Active Substance: MITIGLINIDE
     Dosage: 30 MG, DAILY
  2. TRULICITY [Suspect]
     Active Substance: DULAGLUTIDE
     Indication: PRODUCT USED FOR UNKNOWN INDICATION
     Dosage: 0.75 MG, WEEKLY (1/W)
     Route: 058
  3. VOGLIBOSE [Concomitant]
     Active Substance: VOGLIBOSE
     Dosage: 0.6 MG, DAILY

REACTIONS (1)
  - Dementia [Not Recovered/Not Resolved]
